FAERS Safety Report 5493688-8 (Version None)
Quarter: 2007Q4

REPORT INFORMATION
  Report Type: 
  Country: None (occurrence: None)
  Receive Date: 20071015
  Receipt Date: 20070913
  Transmission Date: 20080405
  Serious: No
  Sender: FDA-Public Use
  Company Number: 2007SP003186

PATIENT
  Age: 80 Year
  Sex: Female

DRUGS (6)
  1. LUNESTA [Suspect]
     Dosage: 0.5 MG; ORAL
     Route: 048
  2. AMLODIPINE BESYLATE [Concomitant]
  3. LASIX [Concomitant]
  4. ATACAND [Concomitant]
  5. PREVACID [Concomitant]
  6. ACTONEL [Concomitant]

REACTIONS (1)
  - HANGOVER [None]
